FAERS Safety Report 19487534 (Version 2)
Quarter: 2021Q3

REPORT INFORMATION
  Report Type: Spontaneous
  Country: IT (occurrence: IT)
  Receive Date: 20210702
  Receipt Date: 20210915
  Transmission Date: 20211014
  Serious: Yes (Other)
  Sender: FDA-Public Use
  Company Number: IT-JNJFOC-20210656888

PATIENT
  Age: 37 Year
  Sex: Female
  Weight: 34.5 kg

DRUGS (1)
  1. REMICADE [Suspect]
     Active Substance: INFLIXIMAB
     Indication: STILL^S DISEASE
     Route: 042
     Dates: end: 2015

REACTIONS (6)
  - Pyrexia [Unknown]
  - Product use in unapproved indication [Unknown]
  - Muscle rigidity [Unknown]
  - Polyarthritis [Unknown]
  - Inflammation [Unknown]
  - Off label use [Unknown]
